FAERS Safety Report 8044537-5 (Version None)
Quarter: 2012Q1

REPORT INFORMATION
  Report Type: 
  Country: None (occurrence: None)
  Receive Date: 20120113
  Receipt Date: 20110314
  Transmission Date: 20120608
  Serious: No
  Sender: FDA-Public Use
  Company Number: US-TEVA-270864USA

PATIENT
  Sex: Female

DRUGS (4)
  1. ALBUTEROL SULFATE AND IPRATROPIUM BROMIDE [Suspect]
     Indication: DYSPNOEA
     Dosage: 0.5MG/3MG
     Route: 055
  2. PROCATEROL HCL [Concomitant]
  3. FLUTICASONE PROPIONATE [Concomitant]
  4. SALMETEROL XINAFOATE [Concomitant]

REACTIONS (2)
  - DRUG INEFFECTIVE [None]
  - DYSPNOEA [None]
